FAERS Safety Report 20732893 (Version 1)
Quarter: 2022Q2

REPORT INFORMATION
  Report Type: Report from Study
  Country: AT (occurrence: AT)
  Receive Date: 20220420
  Receipt Date: 20220420
  Transmission Date: 20220721
  Serious: Yes (Other)
  Sender: FDA-Public Use
  Company Number: AT-ABBVIE-22K-009-4364837-00

PATIENT

DRUGS (4)
  1. HUMIRA [Suspect]
     Active Substance: ADALIMUMAB
     Indication: Ankylosing spondylitis
     Route: 058
  2. COVID-19 VACCINE [Concomitant]
     Indication: Prophylaxis
     Dosage: FIRST DOSE
     Route: 030
  3. COVID-19 VACCINE [Concomitant]
     Dosage: SECOND DOSE
     Route: 030
  4. COVID-19 VACCINE [Concomitant]
     Dosage: THIRD DOSE
     Route: 030

REACTIONS (1)
  - SARS-CoV-2 test positive [Recovered/Resolved]

NARRATIVE: CASE EVENT DATE: 20211026
